FAERS Safety Report 5933756-7 (Version None)
Quarter: 2008Q4

REPORT INFORMATION
  Report Type: 
  Country: None (occurrence: None)
  Receive Date: 20081024
  Receipt Date: 20081014
  Transmission Date: 20090506
  Serious: Yes (Hospitalization)
  Sender: FDA-Public Use
  Company Number: CAR_00210_2008

PATIENT
  Age: 53 Year
  Sex: Female

DRUGS (2)
  1. DICLOFENAC SODIUM [Suspect]
     Indication: ARTHROPATHY
     Dosage: (DF ORAL)
     Route: 048
  2. DICLOFENAC SODIUM [Suspect]
     Indication: MYALGIA
     Dosage: (DF ORAL)
     Route: 048

REACTIONS (4)
  - ARTERIOSCLEROSIS [None]
  - GENERALISED OEDEMA [None]
  - GLOMERULONEPHRITIS MINIMAL LESION [None]
  - RENAL TUBULAR NECROSIS [None]
